FAERS Safety Report 14959621 (Version 1)
Quarter: 2018Q2

REPORT INFORMATION
  Report Type: Spontaneous
  Country: US (occurrence: US)
  Receive Date: 20180531
  Receipt Date: 20180531
  Transmission Date: 20180711
  Serious: Yes (Hospitalization, Other)
  Sender: FDA-Public Use
  Company Number: US-TARO-2018TAR00392

PATIENT
  Age: 53 Year
  Sex: Female
  Weight: 67.57 kg

DRUGS (3)
  1. ENALAPRIL MALEATE TABLETS USP 2.5 MG [Suspect]
     Active Substance: ENALAPRIL MALEATE
     Indication: HYPERTENSION
     Dosage: 2.5 MG, 1X/DAY
     Route: 048
     Dates: start: 201801, end: 20180511
  2. ANASTROZOLE. [Concomitant]
     Active Substance: ANASTROZOLE
  3. OTHER UNSPECIFIED SUPPLEMENTS [Concomitant]

REACTIONS (3)
  - Feeling abnormal [Recovered/Resolved]
  - Anaphylactic reaction [Recovered/Resolved]
  - Angioedema [Recovered/Resolved]

NARRATIVE: CASE EVENT DATE: 20180511
